FAERS Safety Report 13753072 (Version 9)
Quarter: 2018Q2

REPORT INFORMATION
  Report Type: Report from Study
  Country: US (occurrence: US)
  Receive Date: 20170714
  Receipt Date: 20180625
  Transmission Date: 20180711
  Serious: Yes (Hospitalization, Other)
  Sender: FDA-Public Use
  Company Number: US-GLAXOSMITHKLINE-US2017GSK108350

PATIENT
  Sex: Female

DRUGS (3)
  1. FOLATE [Concomitant]
     Active Substance: FOLATE SODIUM
     Indication: PRODUCT USED FOR UNKNOWN INDICATION
     Dosage: UNK
     Dates: start: 20160922
  2. BELIMUMAB [Suspect]
     Active Substance: BELIMUMAB
     Indication: SYSTEMIC LUPUS ERYTHEMATOSUS
     Dosage: 10 MG/KG, CYC
     Route: 042
     Dates: end: 20160728
  3. ASPIRIN (BABY) [Concomitant]
     Active Substance: ASPIRIN
     Indication: PROPHYLAXIS
     Dosage: UNK
     Dates: start: 20160922

REACTIONS (6)
  - Premature separation of placenta [Recovered/Resolved]
  - Live birth [Unknown]
  - Maternal exposure before pregnancy [Unknown]
  - Fall [Unknown]
  - Vaginal haemorrhage [Unknown]
  - Ligament sprain [Unknown]

NARRATIVE: CASE EVENT DATE: 20170506
